FAERS Safety Report 25690585 (Version 1)
Quarter: 2025Q3

REPORT INFORMATION
  Report Type: Spontaneous
  Country: US (occurrence: None)
  Receive Date: 20250818
  Receipt Date: 20250818
  Transmission Date: 20251021
  Serious: Yes (Death, Hospitalization)
  Sender: FDA-CTU
  Company Number: None

PATIENT
  Age: 12 Year
  Sex: Male
  Weight: 77.7 kg

DRUGS (4)
  1. CALASPARGASE PEGOL [Suspect]
     Active Substance: CALASPARGASE PEGOL
     Dates: end: 20250707
  2. SPRYCEL [Suspect]
     Active Substance: DASATINIB
     Dates: end: 20250720
  3. DAUNORUBICIN HYDROCHLORIDE [Suspect]
     Active Substance: DAUNORUBICIN HYDROCHLORIDE
     Dates: end: 20250717
  4. PREDNISONE [Suspect]
     Active Substance: PREDNISONE
     Dates: end: 20250721

REACTIONS (12)
  - Tachyarrhythmia [None]
  - Distributive shock [None]
  - Respiratory failure [None]
  - Pulseless electrical activity [None]
  - Subdural haemorrhage [None]
  - Acute hepatic failure [None]
  - Acute kidney injury [None]
  - Coagulopathy [None]
  - Hepatotoxicity [None]
  - Asterixis [None]
  - Sleep talking [None]
  - Therapy non-responder [None]

NARRATIVE: CASE EVENT DATE: 20250723
